FAERS Safety Report 12752046 (Version 1)
Quarter: 2016Q3

REPORT INFORMATION
  Report Type: Spontaneous
  Country: US (occurrence: US)
  Receive Date: 20160915
  Receipt Date: 20160915
  Transmission Date: 20161109
  Serious: No
  Sender: FDA-Public Use
  Company Number: US-ALLERGAN-1665402US

PATIENT
  Age: 50 Year
  Sex: Female
  Weight: 68.27 kg

DRUGS (6)
  1. COREG CR [Concomitant]
     Active Substance: CARVEDILOL PHOSPHATE
     Indication: MYOCARDIAL BRIDGING
     Dosage: 10 MG, QOD
  2. VIBERZI [Suspect]
     Active Substance: ELUXADOLINE
     Indication: DIARRHOEA
  3. COREG CR [Concomitant]
     Active Substance: CARVEDILOL PHOSPHATE
     Indication: CHEST PAIN
  4. RESTASIS [Concomitant]
     Active Substance: CYCLOSPORINE
     Indication: DRY EYE
     Dosage: 1 GTT, QD
     Route: 047
  5. RHINOCORT [Concomitant]
     Active Substance: BUDESONIDE
     Indication: SINUS DISORDER
     Dosage: 32 ?G, QD
     Route: 045
  6. VIBERZI [Suspect]
     Active Substance: ELUXADOLINE
     Indication: CROHN^S DISEASE
     Dosage: 75 MG, BID
     Route: 048

REACTIONS (7)
  - Inappropriate schedule of drug administration [Unknown]
  - Chest pain [Recovered/Resolved]
  - Dizziness [Recovered/Resolved]
  - Off label use [Unknown]
  - Feeling abnormal [Recovered/Resolved]
  - Feeling drunk [Recovered/Resolved]
  - Nausea [Recovered/Resolved]

NARRATIVE: CASE EVENT DATE: 20160715
